FAERS Safety Report 6317645-4 (Version None)
Quarter: 2009Q3

REPORT INFORMATION
  Report Type: 
  Country: None (occurrence: None)
  Receive Date: 20090820
  Receipt Date: 20090820
  Transmission Date: 20100115
  Serious: Yes (Other)
  Sender: FDA-Public Use
  Company Number: None

PATIENT
  Sex: Male
  Weight: 72.7 kg

DRUGS (2)
  1. LIPITOR [Suspect]
     Indication: BLOOD CHOLESTEROL INCREASED
     Dosage: 20MG ONCER PER DAY ORAL TABLET
     Route: 048
     Dates: start: 20040601, end: 20090721
  2. LIPITOR [Suspect]
     Indication: BLOOD TRIGLYCERIDES
     Dosage: 20MG ONCER PER DAY ORAL TABLET
     Route: 048
     Dates: start: 20040601, end: 20090721

REACTIONS (2)
  - GAIT DISTURBANCE [None]
  - RHABDOMYOLYSIS [None]
